FAERS Safety Report 5076507-3 (Version None)
Quarter: 2006Q3

REPORT INFORMATION
  Report Type: 
  Country: None (occurrence: None)
  Receive Date: 20060725
  Receipt Date: 20060530
  Transmission Date: 20061208
  Serious: No
  Sender: FDA-Public Use
  Company Number: 200613817BWH

PATIENT
  Age: 36 Year
  Sex: Female
  Weight: 81.6475 kg

DRUGS (6)
  1. NEXAVAR [Suspect]
     Indication: EWING'S SARCOMA
     Dosage: 400 MG, BID, ORAL
     Route: 048
     Dates: start: 20060518
  2. OXYCONTIN [Concomitant]
  3. LISINOPRIL [Concomitant]
  4. HYDROCHLOROTHIAZIDE [Concomitant]
  5. PHENERGAN [Concomitant]
  6. ATIVAN [Concomitant]

REACTIONS (5)
  - FLUSHING [None]
  - GLOSSODYNIA [None]
  - PAIN OF SKIN [None]
  - PRURITUS [None]
  - SKIN BURNING SENSATION [None]
